FAERS Safety Report 15075574 (Version 1)
Quarter: 2018Q2

REPORT INFORMATION
  Report Type: Report from Study
  Country: CO (occurrence: CO)
  Receive Date: 20180627
  Receipt Date: 20180627
  Transmission Date: 20180711
  Serious: Yes (Hospitalization)
  Sender: FDA-Public Use
  Company Number: CO-ACTELION-A-CH2018-174207

PATIENT
  Age: 6 Year
  Sex: Female
  Weight: 20 kg

DRUGS (1)
  1. TRACLEER [Suspect]
     Active Substance: BOSENTAN
     Indication: PULMONARY ARTERIAL HYPERTENSION
     Dosage: 62.5 MG, QD
     Route: 048
     Dates: start: 20150618

REACTIONS (5)
  - Cough [Recovering/Resolving]
  - Syncope [Recovering/Resolving]
  - Viral infection [Recovering/Resolving]
  - Secretion discharge [Recovering/Resolving]
  - Tachycardia [Recovering/Resolving]
